FAERS Safety Report 8973247 (Version 1)
Quarter: 2012Q4

REPORT INFORMATION
  Report Type: 
  Country: IT (occurrence: IT)
  Receive Date: 20121219
  Receipt Date: 20121219
  Transmission Date: 20130627
  Serious: Yes (Life-Threatening, Hospitalization, Other)
  Sender: FDA-Public Use
  Company Number: IT-COVIDIEN/TYCO HEALTHCARE/MALLINCKRODT-T201204271

PATIENT
  Age: 53 Year
  Sex: Female

DRUGS (1)
  1. EXALGO EXTENDED RELEASE [Suspect]
     Indication: CANCER PAIN
     Dosage: 4 mg, 1 in 1 total
     Route: 048
     Dates: start: 20121124, end: 20121125

REACTIONS (2)
  - Respiratory depression [Recovered/Resolved]
  - Sensory loss [Recovered/Resolved]
